FAERS Safety Report 9664832 (Version 2)
Quarter: 2013Q4

REPORT INFORMATION
  Report Type: Report from Study
  Country: FR (occurrence: FR)
  Receive Date: 20131101
  Receipt Date: 20131115
  Transmission Date: 20140711
  Serious: Yes (Death)
  Sender: FDA-Public Use
  Company Number: FR-009507513-1310FRA014442

PATIENT
  Age: 52 Year
  Sex: Male
  Weight: 57 kg

DRUGS (5)
  1. MK-5172 [Suspect]
     Indication: CHRONIC HEPATITIS C
     Dosage: 100 MG, QD
     Route: 048
     Dates: start: 20131009, end: 20131024
  2. MK-8742 [Suspect]
     Indication: CHRONIC HEPATITIS C
     Dosage: 50 MG, QD
     Route: 048
     Dates: start: 20131009, end: 20131024
  3. RIBAVIRIN [Suspect]
     Indication: CHRONIC HEPATITIS C
     Dosage: 2 CAPSULES, UNK
     Route: 048
     Dates: start: 20131009, end: 20131009
  4. RIBAVIRIN [Suspect]
     Dosage: 2 CAPSULES, QAM
     Route: 048
     Dates: start: 20131010, end: 20131024
  5. RIBAVIRIN [Suspect]
     Dosage: 2 CAPSULES, QPM
     Route: 048
     Dates: start: 20131009, end: 20131023

REACTIONS (1)
  - Road traffic accident [Fatal]
